FAERS Safety Report 16929835 (Version 1)
Quarter: 2019Q4

REPORT INFORMATION
  Report Type: Spontaneous
  Country: US (occurrence: US)
  Receive Date: 20191017
  Receipt Date: 20191017
  Transmission Date: 20200122
  Serious: Yes (Other)
  Sender: FDA-Public Use
  Company Number: None

PATIENT
  Age: 63 Year
  Sex: Female
  Weight: 84.15 kg

DRUGS (13)
  1. FUROSEMIDE 40MG [Concomitant]
     Active Substance: FUROSEMIDE
     Dates: start: 20190829
  2. VANCOMYCIN [Suspect]
     Active Substance: VANCOMYCIN
     Indication: OSTEOMYELITIS
     Route: 042
     Dates: start: 20190907, end: 20191009
  3. VANCOMYCIN [Suspect]
     Active Substance: VANCOMYCIN
     Indication: CELLULITIS
     Route: 042
     Dates: start: 20190907, end: 20191009
  4. CYANOCOBALAMIN ER 500 MCG [Concomitant]
     Dates: start: 20190829
  5. NAPROSYN [Concomitant]
     Active Substance: NAPROXEN
     Dates: start: 20190829
  6. ASPIRIN 81MG [Concomitant]
     Active Substance: ASPIRIN
     Dates: start: 20190829
  7. PANTOPRAZOLE DR 40MG [Concomitant]
     Dates: start: 20190829
  8. SPIRONOLACTONE 50MG [Concomitant]
     Active Substance: SPIRONOLACTONE
     Dates: start: 20190829
  9. LATANOPROST OPHTH. SOLN 0.005% [Concomitant]
     Dates: start: 20190829
  10. LORATADINE 10MG [Concomitant]
     Active Substance: LORATADINE
     Dates: start: 20190829
  11. RANITIDINE. [Concomitant]
     Active Substance: RANITIDINE
     Dates: start: 20190829
  12. MONTELUKAST [Concomitant]
     Active Substance: MONTELUKAST SODIUM
     Dates: start: 20190829
  13. MULTICOMPLETE ORAL [Concomitant]
     Dates: start: 20190829

REACTIONS (3)
  - Erythema [None]
  - Burning sensation [None]
  - Urticaria [None]

NARRATIVE: CASE EVENT DATE: 20191009
